FAERS Safety Report 10422282 (Version 1)
Quarter: 2014Q3

REPORT INFORMATION
  Report Type: Spontaneous
  Country: US (occurrence: US)
  Receive Date: 20140901
  Receipt Date: 20140901
  Transmission Date: 20150326
  Serious: No
  Sender: FDA-Public Use
  Company Number: US-009507513-1408USA009569

PATIENT
  Sex: Female

DRUGS (1)
  1. IMPLANON [Suspect]
     Active Substance: ETONOGESTREL
     Indication: CONTRACEPTION
     Dosage: 1 SINGLE ROD
     Route: 059

REACTIONS (5)
  - Overdose [Unknown]
  - Incorrect drug administration duration [Not Recovered/Not Resolved]
  - Device deployment issue [Not Recovered/Not Resolved]
  - No adverse event [Unknown]
  - Medical device complication [Not Recovered/Not Resolved]
